FAERS Safety Report 15797472 (Version 1)
Quarter: 2019Q1

REPORT INFORMATION
  Report Type: Spontaneous
  Country: US (occurrence: US)
  Receive Date: 20190108
  Receipt Date: 20190108
  Transmission Date: 20190417
  Serious: No
  Sender: FDA-Public Use
  Company Number: US-TORRENT-00007078

PATIENT
  Age: 69 Year
  Sex: Female
  Weight: 60 kg

DRUGS (4)
  1. DULOXETINE. [Concomitant]
     Active Substance: DULOXETINE
     Indication: DEPRESSION
  2. TRANTRIN [Concomitant]
     Indication: BLOOD PRESSURE MEASUREMENT
  3. CELECOXIB. [Suspect]
     Active Substance: CELECOXIB
     Indication: BLOOD PRESSURE MEASUREMENT
  4. OMAPRAZOLE [Concomitant]
     Indication: ABDOMINAL PAIN UPPER

REACTIONS (4)
  - Off label use [Unknown]
  - Dyspnoea [Not Recovered/Not Resolved]
  - Headache [Not Recovered/Not Resolved]
  - Dyspepsia [Not Recovered/Not Resolved]
